FAERS Safety Report 8471875-4 (Version None)
Quarter: 2012Q2

REPORT INFORMATION
  Report Type: 
  Country: None (occurrence: None)
  Receive Date: 20120627
  Receipt Date: 20120620
  Transmission Date: 20120825
  Serious: Yes (Hospitalization, Disabling, Other)
  Sender: FDA-Public Use
  Company Number: BR-ABBOTT-12P-020-0940591-00

PATIENT
  Sex: Female
  Weight: 65 kg

DRUGS (12)
  1. INSULIN [Concomitant]
     Indication: DIABETES MELLITUS
     Route: 058
  2. CAPTOPRIL [Concomitant]
     Indication: HYPERTENSION
     Route: 048
  3. OMEPRAZOLE [Concomitant]
     Indication: GASTRITIS
     Dosage: IN THE MORNING / BEFORE DINNER
     Route: 048
  4. HUMIRA [Suspect]
     Indication: RHEUMATOID ARTHRITIS
     Route: 058
     Dates: start: 20111128
  5. ALENDRONATE SODIUM [Concomitant]
     Indication: RHEUMATOID ARTHRITIS
     Route: 048
  6. LEFLUNOMIDE [Concomitant]
     Indication: RHEUMATOID ARTHRITIS
     Dosage: IN THE MORNING
     Route: 048
  7. HYDROCHLOROTHIAZIDE [Concomitant]
     Indication: HYPERTENSION
     Dosage: IN THE MORNING
     Route: 048
  8. SPINAL ANESTHESIA [Suspect]
     Indication: PRODUCT USED FOR UNKNOWN INDICATION
  9. DIGOXIN [Concomitant]
     Indication: CARDIAC DISORDER
     Dosage: IN THE MORNING
     Route: 048
  10. FLUOXETINE [Concomitant]
     Indication: DEPRESSION
     Dosage: AT NIGHT
     Route: 048
  11. SODIUM CARBONATE [Concomitant]
     Indication: OSTEOPOROSIS
     Dosage: AFTER BREAKFAST
     Route: 048
  12. METHOTREXATE [Concomitant]
     Indication: IMMUNOSUPPRESSION
     Route: 048

REACTIONS (14)
  - ANAESTHETIC COMPLICATION [None]
  - MALAISE [None]
  - PATELLA FRACTURE [None]
  - HAND FRACTURE [None]
  - MOBILITY DECREASED [None]
  - DIZZINESS [None]
  - DIARRHOEA [None]
  - HEADACHE [None]
  - FALL [None]
  - VOMITING [None]
  - PAIN IN EXTREMITY [None]
  - ARTHRALGIA [None]
  - HYPERSENSITIVITY [None]
  - RETCHING [None]
